FAERS Safety Report 19969995 (Version 7)
Quarter: 2022Q4

REPORT INFORMATION
  Report Type: Report from Study
  Country: GB (occurrence: GB)
  Receive Date: 20211019
  Receipt Date: 20221117
  Transmission Date: 20230113
  Serious: Yes (Hospitalization)
  Sender: FDA-Public Use
  Company Number: GB-EXELIXIS-XL18421045048

PATIENT

DRUGS (31)
  1. CABOZANTINIB [Suspect]
     Active Substance: CABOZANTINIB
     Indication: Lung squamous cell carcinoma metastatic
     Dosage: 40 MG, QD
     Route: 048
     Dates: start: 20210428
  2. ATEZOLIZUMAB [Suspect]
     Active Substance: ATEZOLIZUMAB
     Indication: Lung squamous cell carcinoma metastatic
     Dosage: 1200 MG, Q3WEEKS
     Route: 041
     Dates: start: 20210428
  3. CODEINE PHOSPHATE [Concomitant]
     Active Substance: CODEINE PHOSPHATE
     Indication: Pain
     Dosage: 15 MG, 1 IN 1 AS REQUIRED
     Route: 048
     Dates: start: 202006
  4. DUTASTERIDE [Concomitant]
     Active Substance: DUTASTERIDE
     Indication: Benign prostatic hyperplasia
     Dosage: 500 UG, QD
     Route: 048
     Dates: start: 2009
  5. ACETAMINOPHEN [Concomitant]
     Active Substance: ACETAMINOPHEN
     Indication: Pain
     Dosage: 1 G, 1 IN 1 AS REQUIRED
     Route: 048
     Dates: start: 202006
  6. LOPERAMIDE [Concomitant]
     Active Substance: LOPERAMIDE
     Indication: Diarrhoea
     Dosage: UNK
     Dates: start: 20210712
  7. ATORVASTATIN [Concomitant]
     Active Substance: ATORVASTATIN
     Indication: Coronary artery disease
     Dosage: UNK
     Dates: start: 20210826
  8. ASPIRIN [Concomitant]
     Active Substance: ASPIRIN
     Indication: Coronary artery disease
     Dosage: UNK
     Dates: start: 20210826
  9. LEVOTHYROXINE [Concomitant]
     Active Substance: LEVOTHYROXINE
     Indication: Hypothyroidism
     Dosage: 75 UG, QD
     Route: 048
     Dates: start: 20210616
  10. OMEPRAZOLE [Concomitant]
     Active Substance: OMEPRAZOLE
     Indication: Dyspepsia
     Dosage: UNK
     Dates: start: 20210811
  11. BISOPROLOL [Concomitant]
     Active Substance: BISOPROLOL
     Dosage: UNK
     Dates: start: 20210825
  12. CODEINE [Concomitant]
     Active Substance: CODEINE
     Indication: Non-cardiac chest pain
     Dosage: UNK
     Dates: start: 20210818
  13. RAMIPRIL [Concomitant]
     Active Substance: RAMIPRIL
     Indication: Cardiac disorder
     Dosage: UNK
     Dates: start: 20210819, end: 20211025
  14. MORPHINE SULFATE [Concomitant]
     Active Substance: MORPHINE SULFATE
     Indication: Non-cardiac chest pain
     Dosage: UNK
     Dates: start: 20210818
  15. PREDNISOLONE [Concomitant]
     Active Substance: PREDNISOLONE
     Indication: Myocarditis
     Dosage: 40 MG, QD
     Route: 048
     Dates: start: 20210831, end: 20210907
  16. PREDNISOLONE [Concomitant]
     Active Substance: PREDNISOLONE
     Indication: Fatigue
     Dosage: 30 MG, QD
     Route: 048
     Dates: start: 20210908, end: 20210915
  17. PREDNISOLONE [Concomitant]
     Active Substance: PREDNISOLONE
     Dosage: 20 MG, QD
     Route: 048
     Dates: start: 20210915, end: 20210920
  18. PREDNISOLONE [Concomitant]
     Active Substance: PREDNISOLONE
     Dosage: 10 MG, QD
     Route: 048
     Dates: start: 20210920, end: 20210921
  19. PREDNISOLONE [Concomitant]
     Active Substance: PREDNISOLONE
     Dosage: 20 MG, QD
     Route: 048
     Dates: start: 20210921
  20. PREDNISOLONE [Concomitant]
     Active Substance: PREDNISOLONE
     Dosage: 10 MG, QD
     Route: 048
     Dates: start: 20210928, end: 20211004
  21. PREDNISOLONE [Concomitant]
     Active Substance: PREDNISOLONE
     Dosage: 5 MG, QD
     Route: 048
     Dates: start: 20211005, end: 20211006
  22. PREDNISOLONE [Concomitant]
     Active Substance: PREDNISOLONE
     Dosage: 10 MG, QD
     Route: 048
     Dates: start: 20211007
  23. POLYETHYLENE GLYCOLS [Concomitant]
     Active Substance: POLYETHYLENE GLYCOLS
     Indication: Constipation
     Dosage: UNK
     Dates: start: 20211003
  24. HYPROMELLOSES [Concomitant]
     Active Substance: HYPROMELLOSES
     Indication: Dry eye
     Dosage: UNK
     Dates: start: 20211004
  25. MAGNESIUM GLYCEROPHOSPHATE [Concomitant]
     Active Substance: MAGNESIUM GLYCEROPHOSPHATE
     Indication: Hypomagnesaemia
     Dosage: UNK
     Dates: start: 20211004, end: 20211006
  26. FLUAD TETRA [Concomitant]
     Active Substance: INFLUENZA VIRUS VACCINE
     Dosage: UNK
     Dates: start: 20211002, end: 20211002
  27. UNSPECIFIED INGREDIENT [Concomitant]
     Active Substance: UNSPECIFIED INGREDIENT
     Indication: Hypophosphataemia
     Dosage: UNK
     Dates: start: 20211006, end: 20211006
  28. PFIZER-BIONTECH COVID-19 VACCINE [Concomitant]
     Active Substance: TOZINAMERAN
     Indication: Immunisation
     Dosage: UNK
     Dates: start: 20211026, end: 20211026
  29. GEMCITABINE [Concomitant]
     Active Substance: GEMCITABINE
     Dosage: 1395 MG
     Dates: start: 20220111, end: 20220518
  30. CARBOPLATIN [Concomitant]
     Active Substance: CARBOPLATIN
     Dosage: 515.6 MG
     Dates: start: 20220111, end: 20220518
  31. Calvive 1000 [Concomitant]
     Indication: Hypokalaemia
     Dosage: UNK
     Dates: start: 20210809

REACTIONS (1)
  - Malaise [Recovering/Resolving]

NARRATIVE: CASE EVENT DATE: 20211006
